FAERS Safety Report 5680929-7 (Version None)
Quarter: 2008Q1

REPORT INFORMATION
  Report Type: 
  Country: None (occurrence: None)
  Receive Date: 20080326
  Receipt Date: 20080314
  Transmission Date: 20080703
  Serious: Yes (Hospitalization, Other)
  Sender: FDA-Public Use
  Company Number: US-PFIZER INC-2008023134

PATIENT
  Sex: Male
  Weight: 136.1 kg

DRUGS (9)
  1. CHANTIX [Suspect]
     Indication: EX-SMOKER
  2. BUSPAR [Concomitant]
  3. CLONAZEPAM [Concomitant]
  4. LISINOPRIL [Concomitant]
  5. LUNESTA [Concomitant]
  6. VERAPAMIL [Concomitant]
  7. HYDROCHLOROTHIAZIDE [Concomitant]
  8. PREVACID [Concomitant]
  9. ACETYLSALICYLIC ACID SRT [Concomitant]

REACTIONS (18)
  - ACTIVITIES OF DAILY LIVING IMPAIRED [None]
  - AGITATION [None]
  - BIPOLAR DISORDER [None]
  - BLOOD PRESSURE INCREASED [None]
  - CHEST PAIN [None]
  - FACIAL PAIN [None]
  - GENERALISED ANXIETY DISORDER [None]
  - HEADACHE [None]
  - IMPAIRED WORK ABILITY [None]
  - LETHARGY [None]
  - MAJOR DEPRESSION [None]
  - MIGRAINE [None]
  - MUSCULOSKELETAL PAIN [None]
  - PAIN [None]
  - PANIC ATTACK [None]
  - SENSORY LOSS [None]
  - SUICIDAL IDEATION [None]
  - TRANSIENT ISCHAEMIC ATTACK [None]
